FAERS Safety Report 23044748 (Version 1)
Quarter: 2023Q4

REPORT INFORMATION
  Report Type: Spontaneous
  Country: US (occurrence: US)
  Receive Date: 20231009
  Receipt Date: 20231009
  Transmission Date: 20240110
  Serious: No
  Sender: FDA-Public Use
  Company Number: US-JNJFOC-20230956895

PATIENT
  Age: 89 Year
  Sex: Female

DRUGS (2)
  1. TYLENOL 8 HR ARTHRITIS PAIN [Suspect]
     Active Substance: ACETAMINOPHEN
     Indication: Product used for unknown indication
     Dosage: 2 OF THE ARTHRITIS IN THE MORNING THEN, 6 OR 8 HOURS LATER AND 2 AT NIGHT
     Route: 065
  2. TYLENOL EXTRA STRENGTH [Concomitant]
     Active Substance: ACETAMINOPHEN
     Indication: Product used for unknown indication
     Dosage: 1 RAPID RELEASE IN THE MIDDLE OF THE DAY
     Route: 065

REACTIONS (1)
  - Inappropriate schedule of product administration [Unknown]
